FAERS Safety Report 7692724-8 (Version None)
Quarter: 2011Q3

REPORT INFORMATION
  Report Type: 
  Country: None (occurrence: None)
  Receive Date: 20110819
  Receipt Date: 20110816
  Transmission Date: 20111222
  Serious: No
  Sender: FDA-Public Use
  Company Number: US-PFIZER INC-2011189671

PATIENT
  Sex: Female

DRUGS (3)
  1. PROZAC [Suspect]
     Dosage: UNK
  2. MICROGESTIN FE 1.5/30 [Suspect]
     Indication: CONTRACEPTION
     Dosage: UNK
  3. GEODON [Suspect]
     Dosage: UNK

REACTIONS (1)
  - PREMENSTRUAL SYNDROME [None]
